FAERS Safety Report 22004005 (Version 2)
Quarter: 2023Q1

REPORT INFORMATION
  Report Type: Spontaneous
  Country: CZ (occurrence: CZ)
  Receive Date: 20230217
  Receipt Date: 20230309
  Transmission Date: 20230417
  Serious: Yes (Other)
  Sender: FDA-Public Use
  Company Number: None

PATIENT
  Age: 63 Year
  Sex: Female

DRUGS (5)
  1. LEVETIRACETAM [Suspect]
     Active Substance: LEVETIRACETAM
     Indication: Epilepsy
     Dosage: 3000 MILLIGRAM, QD
  2. ESLICARBAZEPINE [Suspect]
     Active Substance: ESLICARBAZEPINE
     Indication: Epilepsy
     Dosage: 400 MILLIGRAM, QD
  3. LAMOTRIGINE [Suspect]
     Active Substance: LAMOTRIGINE
     Indication: Epilepsy
  4. PERAMPANEL [Suspect]
     Active Substance: PERAMPANEL
     Indication: Product used for unknown indication
     Dosage: 8 MILLIGRAM, QD
  5. PHENYTOIN [Suspect]
     Active Substance: PHENYTOIN
     Indication: Epilepsy

REACTIONS (2)
  - Seizure [Recovered/Resolved]
  - Drug resistance [Unknown]
